FAERS Safety Report 4807716-3 (Version None)
Quarter: 2005Q4

REPORT INFORMATION
  Report Type: 
  Country: None (occurrence: None)
  Receive Date: 20051019
  Receipt Date: 20051013
  Transmission Date: 20060501
  Serious: Yes (Other)
  Sender: FDA-Public Use
  Company Number: DE-2005-020735

PATIENT
  Sex: Female

DRUGS (1)
  1. YASMIN [Suspect]
     Dosage: ORAL
     Route: 048
     Dates: start: 20050101

REACTIONS (7)
  - CROHN'S DISEASE [None]
  - DRUG INEFFECTIVE [None]
  - DUODENITIS [None]
  - FOOD INTOLERANCE [None]
  - GASTRITIS [None]
  - NAUSEA [None]
  - WEIGHT DECREASED [None]
